FAERS Safety Report 24120038 (Version 2)
Quarter: 2024Q3

REPORT INFORMATION
  Report Type: Spontaneous
  Country: US (occurrence: US)
  Receive Date: 20240722
  Receipt Date: 20240820
  Transmission Date: 20241016
  Serious: Yes (Other)
  Sender: PFIZER
  Company Number: US-PFIZER INC-PV202400094232

PATIENT
  Age: 62 Year
  Sex: Female

DRUGS (1)
  1. IBRANCE [Suspect]
     Active Substance: PALBOCICLIB
     Dosage: 125MG, TAKE 1 TAB DAILY FOR 3 WEEKS ON AND 1 WEEK OFF

REACTIONS (2)
  - Renal impairment [Unknown]
  - Tumour marker increased [Unknown]
